FAERS Safety Report 5373700-7 (Version None)
Quarter: 2007Q2

REPORT INFORMATION
  Report Type: 
  Country: None (occurrence: None)
  Receive Date: 20070628
  Receipt Date: 20070618
  Transmission Date: 20071010
  Serious: Yes (Other)
  Sender: FDA-Public Use
  Company Number: HQWYE655718JUN07

PATIENT
  Age: 58 Year
  Sex: Female

DRUGS (2)
  1. HYPEN [Suspect]
     Indication: ARTHRALGIA
     Dosage: 200 MG, ONE DOSE
     Dates: start: 20070608, end: 20070608
  2. IRSOGLADINE MALEATE [Concomitant]
     Dosage: UNKNOWN
     Dates: start: 20070608, end: 20070608

REACTIONS (1)
  - INTERSTITIAL LUNG DISEASE [None]
